FAERS Safety Report 8110845-2 (Version None)
Quarter: 2012Q1

REPORT INFORMATION
  Report Type: 
  Country: None (occurrence: None)
  Receive Date: 20120203
  Receipt Date: 20120126
  Transmission Date: 20120608
  Serious: Yes (Hospitalization)
  Sender: FDA-Public Use
  Company Number: US-US-EMD SERONO, INC.-7058933

PATIENT
  Sex: Female

DRUGS (2)
  1. REBIF [Suspect]
     Indication: MULTIPLE SCLEROSIS
     Route: 058
     Dates: start: 20100629
  2. NAPROXEN (ALEVE) [Concomitant]
     Indication: PREMEDICATION

REACTIONS (10)
  - MULTIPLE SCLEROSIS RELAPSE [None]
  - INJECTION SITE ERYTHEMA [None]
  - INJECTION SITE HAEMATOMA [None]
  - PAIN [None]
  - INFLUENZA LIKE ILLNESS [None]
  - CHILLS [None]
  - LOSS OF CONSCIOUSNESS [None]
  - ASTHENIA [None]
  - INTERVERTEBRAL DISC COMPRESSION [None]
  - HEADACHE [None]
